FAERS Safety Report 16244227 (Version 1)
Quarter: 2019Q2

REPORT INFORMATION
  Report Type: Spontaneous
  Country: AU (occurrence: AU)
  Receive Date: 20190426
  Receipt Date: 20190426
  Transmission Date: 20190711
  Serious: Yes (Other)
  Sender: FDA-Public Use
  Company Number: AU-TASMAN PHARMA, INC.-2019TSM00024

PATIENT
  Sex: Male

DRUGS (75)
  1. CLOZAPINE. [Concomitant]
     Active Substance: CLOZAPINE
     Dosage: 325 MG
     Dates: start: 20100406, end: 20100530
  2. CLOZAPINE. [Concomitant]
     Active Substance: CLOZAPINE
     Dosage: 425 MG
     Dates: start: 20130902, end: 20130929
  3. CLOZAPINE. [Concomitant]
     Active Substance: CLOZAPINE
     Dosage: 425 MG
     Dates: start: 20141110, end: 20150126
  4. CLOZAPINE. [Concomitant]
     Active Substance: CLOZAPINE
     Dosage: 425 MG
     Dates: start: 20160712, end: 20190319
  5. CLOZAPINE. [Concomitant]
     Active Substance: CLOZAPINE
     Dosage: 250 MG
     Dates: start: 20091229, end: 20100103
  6. CLOZAPINE. [Concomitant]
     Active Substance: CLOZAPINE
     Dosage: 350 MG
     Dates: start: 20120305, end: 20120725
  7. CLOZAPINE. [Concomitant]
     Active Substance: CLOZAPINE
     Dosage: 300 MG
     Dates: start: 20130129, end: 20130203
  8. CLOZAPINE. [Concomitant]
     Active Substance: CLOZAPINE
     Dosage: 425 MG
     Dates: start: 20141027, end: 20141029
  9. CLOZAPINE. [Concomitant]
     Active Substance: CLOZAPINE
     Dosage: 325 MG
     Dates: start: 20100628, end: 20100919
  10. CLOZAPINE. [Concomitant]
     Active Substance: CLOZAPINE
     Dosage: 150 MG
     Dates: start: 20121231, end: 20130107
  11. CLOZAPINE. [Concomitant]
     Active Substance: CLOZAPINE
     Dosage: 250 MG
     Dates: start: 20091027, end: 20091122
  12. CLOZAPINE. [Concomitant]
     Active Substance: CLOZAPINE
     Dosage: 325 MG
     Dates: start: 20100920, end: 20100922
  13. VALPROATE [Concomitant]
     Active Substance: VALPROIC ACID
  14. CLOZAPINE. [Concomitant]
     Active Substance: CLOZAPINE
     Dosage: 250 MG
     Dates: start: 20100104, end: 20100110
  15. CLOZAPINE. [Concomitant]
     Active Substance: CLOZAPINE
     Dosage: 350 MG
     Dates: start: 20120206, end: 20120304
  16. CLOZAPINE. [Concomitant]
     Active Substance: CLOZAPINE
     Dosage: 300 MG
     Dates: start: 20130204, end: 20130211
  17. CLOZAPINE. [Concomitant]
     Active Substance: CLOZAPINE
     Dosage: 325 MG
     Dates: start: 20130212, end: 20130217
  18. CLOZAPINE. [Concomitant]
     Active Substance: CLOZAPINE
     Dosage: 350 MG
     Dates: start: 20130302, end: 20130303
  19. CLOZAPINE. [Concomitant]
     Active Substance: CLOZAPINE
     Dosage: 325 MG
     Dates: start: 20100208, end: 20100214
  20. CLOZAPINE. [Concomitant]
     Active Substance: CLOZAPINE
     Dosage: 350 MG
     Dates: start: 20101018, end: 20101114
  21. CLOZAPINE. [Concomitant]
     Active Substance: CLOZAPINE
     Dosage: 75 MG
     Dates: start: 20121227, end: 20121230
  22. CLOZAPINE. [Concomitant]
     Active Substance: CLOZAPINE
     Dosage: 355 MG
     Dates: start: 20130218, end: 20130224
  23. CLOZAPINE. [Concomitant]
     Active Substance: CLOZAPINE
     Dosage: 425 MG
     Dates: start: 20130318, end: 20130901
  24. CLOZAPINE. [Concomitant]
     Active Substance: CLOZAPINE
     Dosage: 400 MG
     Dates: start: 20140804, end: 20140831
  25. CLOZAPINE. [Concomitant]
     Active Substance: CLOZAPINE
     Dosage: 425 MG
     Dates: start: 20150323, end: 20150517
  26. AZATHIOPRINE. [Concomitant]
     Active Substance: AZATHIOPRINE
     Dosage: UNK
     Dates: start: 201212
  27. CLOZAPINE. [Concomitant]
     Active Substance: CLOZAPINE
     Dosage: 125 MG
     Dates: start: 20091023, end: 20091026
  28. CLOZAPINE. [Concomitant]
     Active Substance: CLOZAPINE
     Dosage: 325 MG
     Dates: start: 20100201, end: 20100207
  29. CLOZAPINE. [Concomitant]
     Active Substance: CLOZAPINE
     Dosage: 325 MG
     Dates: start: 20100215, end: 20100221
  30. CLOZAPINE. [Concomitant]
     Active Substance: CLOZAPINE
     Dosage: 350 MG
     Dates: start: 20110307, end: 20110501
  31. CLOZAPINE. [Concomitant]
     Active Substance: CLOZAPINE
     Dosage: 425 MG
     Dates: start: 20140512, end: 20140609
  32. CLOZAPINE. [Concomitant]
     Active Substance: CLOZAPINE
     Dosage: 425 MG
     Dates: start: 20151229, end: 20160124
  33. CLOZAPINE. [Concomitant]
     Active Substance: CLOZAPINE
     Dosage: 125 MG
     Dates: start: 20091020, end: 20091022
  34. CLOZAPINE. [Concomitant]
     Active Substance: CLOZAPINE
     Dosage: 325 MG
     Dates: start: 20100308, end: 20100405
  35. CLOZAPINE. [Concomitant]
     Active Substance: CLOZAPINE
     Dosage: 350 MG
     Dates: start: 20110502, end: 20120205
  36. CLOZAPINE. [Concomitant]
     Active Substance: CLOZAPINE
     Dosage: 25 MG
     Dates: start: 20140929, end: 20141002
  37. CLOZAPINE. [Concomitant]
     Active Substance: CLOZAPINE
     Dosage: 350 MG
     Dates: start: 20120726, end: 20120819
  38. CLOZAPINE. [Concomitant]
     Active Substance: CLOZAPINE
     Dosage: 425 MG
     Dates: start: 20140901, end: 20140928
  39. CLOZAPINE. [Concomitant]
     Active Substance: CLOZAPINE
     Dosage: 150 MG
     Dates: start: 20141013, end: 20141019
  40. CLOZAPINE. [Concomitant]
     Active Substance: CLOZAPINE
     Dosage: 12.5 MG
     Dates: start: 20190412
  41. CLOZAPINE. [Concomitant]
     Active Substance: CLOZAPINE
     Dosage: 250 MG
     Dates: start: 20130121, end: 20130128
  42. CLOZAPINE. [Concomitant]
     Active Substance: CLOZAPINE
     Dosage: 350 MG
     Dates: start: 20130225, end: 20130301
  43. CLOZAPINE. [Concomitant]
     Active Substance: CLOZAPINE
     Dosage: 350 MG
     Dates: start: 20130304, end: 20130310
  44. CLOZAPINE. [Concomitant]
     Active Substance: CLOZAPINE
     Dosage: 425 MG
     Dates: start: 20130930, end: 20140511
  45. CLOZAPINE. [Concomitant]
     Active Substance: CLOZAPINE
     Dosage: 150 MG
     Dates: start: 20141003, end: 20141012
  46. CLOZAPINE. [Concomitant]
     Active Substance: CLOZAPINE
     Dosage: 425 MG
     Dates: start: 20141103, end: 20141109
  47. CLOZAPINE. [Concomitant]
     Active Substance: CLOZAPINE
     Dosage: 425 MG
     Dates: start: 20150127, end: 20150225
  48. CLOZAPINE. [Concomitant]
     Active Substance: CLOZAPINE
     Dosage: 250 MG
     Dates: start: 20091123, end: 20091206
  49. CLOZAPINE. [Concomitant]
     Active Substance: CLOZAPINE
     Dosage: 300 MG
     Dates: start: 20100113, end: 20100131
  50. CLOZAPINE. [Concomitant]
     Active Substance: CLOZAPINE
     Dosage: 325 MG
     Dates: start: 20100304, end: 20100307
  51. CLOZAPINE. [Concomitant]
     Active Substance: CLOZAPINE
     Dosage: 425 MG
     Dates: start: 20150907, end: 20151005
  52. CLOZAPINE. [Concomitant]
     Active Substance: CLOZAPINE
     Dosage: 325 MG
     Dates: start: 20100222, end: 20100303
  53. CLOZAPINE. [Concomitant]
     Active Substance: CLOZAPINE
     Dosage: 350 MG
     Dates: start: 20120820, end: 20121219
  54. CLOZAPINE. [Concomitant]
     Active Substance: CLOZAPINE
     Dosage: 12.5 MG
     Dates: start: 20121220, end: 20121226
  55. CLOZAPINE. [Concomitant]
     Active Substance: CLOZAPINE
     Dosage: 425 MG
     Dates: start: 20150615, end: 20150906
  56. CLOZAPINE. [Suspect]
     Active Substance: CLOZAPINE
     Dosage: 0 MG
     Dates: start: 20190320
  57. CLOZAPINE. [Concomitant]
     Active Substance: CLOZAPINE
     Dosage: 250 MG
     Dates: start: 20091221, end: 20091228
  58. CLOZAPINE. [Concomitant]
     Active Substance: CLOZAPINE
     Dosage: 325 MG
     Dates: start: 20100923, end: 20101017
  59. CLOZAPINE. [Concomitant]
     Active Substance: CLOZAPINE
     Dosage: 200 MG
     Dates: start: 20130114, end: 20130120
  60. CLOZAPINE. [Concomitant]
     Active Substance: CLOZAPINE
     Dosage: 425 MG
     Dates: start: 20150518, end: 20150614
  61. CLOZAPINE. [Concomitant]
     Active Substance: CLOZAPINE
     Dosage: 300 MG
     Dates: start: 20100111, end: 20100112
  62. CLOZAPINE. [Concomitant]
     Active Substance: CLOZAPINE
     Dosage: 325 MG
     Dates: start: 20100531, end: 20100627
  63. CLOZAPINE. [Concomitant]
     Active Substance: CLOZAPINE
     Dosage: 350 MG
     Dates: start: 20101213, end: 20110306
  64. CLOZAPINE. [Concomitant]
     Active Substance: CLOZAPINE
     Dosage: 425 MG
     Dates: start: 20140610, end: 20140803
  65. CLOZAPINE. [Concomitant]
     Active Substance: CLOZAPINE
     Dosage: 425 MG
     Dates: start: 20160125, end: 20160711
  66. CLOZAPINE. [Concomitant]
     Active Substance: CLOZAPINE
     Dosage: UNK
  67. CLOZAPINE. [Concomitant]
     Active Substance: CLOZAPINE
     Dosage: 350 MG
     Dates: start: 20101115, end: 20101212
  68. CLOZAPINE. [Concomitant]
     Active Substance: CLOZAPINE
     Dosage: 150 MG
     Dates: start: 20130111, end: 20130113
  69. CLOZAPINE. [Concomitant]
     Active Substance: CLOZAPINE
     Dosage: 400 MG
     Dates: start: 20130311, end: 20130317
  70. CLOZAPINE. [Concomitant]
     Active Substance: CLOZAPINE
     Dosage: 425 MG
     Dates: start: 20141030, end: 20141102
  71. CLOZAPINE. [Concomitant]
     Active Substance: CLOZAPINE
     Dosage: 425 MG
     Dates: start: 20150226, end: 20150322
  72. CLOZAPINE. [Concomitant]
     Active Substance: CLOZAPINE
     Dosage: 250 MG
     Dates: start: 20091207, end: 20091220
  73. CLOZAPINE. [Concomitant]
     Active Substance: CLOZAPINE
     Dosage: 150 MG
     Dates: start: 20130108, end: 20130110
  74. CLOZAPINE. [Concomitant]
     Active Substance: CLOZAPINE
     Dosage: 150 MG
     Dates: start: 20141020, end: 20141026
  75. CLOZAPINE. [Concomitant]
     Active Substance: CLOZAPINE
     Dosage: 425 MG
     Dates: start: 20151006, end: 20151228

REACTIONS (1)
  - Agranulocytosis [Recovered/Resolved]

NARRATIVE: CASE EVENT DATE: 20190320
